FAERS Safety Report 22031402 (Version 2)
Quarter: 2024Q1

REPORT INFORMATION
  Report Type: Spontaneous
  Country: US (occurrence: US)
  Receive Date: 20230224
  Receipt Date: 20240227
  Transmission Date: 20240409
  Serious: Yes (Hospitalization, Other)
  Sender: FDA-Public Use
  Company Number: US-Axellia-004409

PATIENT
  Age: 53 Year
  Sex: Female

DRUGS (1)
  1. VANCOMYCIN [Suspect]
     Active Substance: VANCOMYCIN
     Indication: Diarrhoea
     Dosage: 3 CYCLES
     Dates: start: 202204

REACTIONS (2)
  - Drug ineffective [Unknown]
  - Clostridium difficile infection [Unknown]
